FAERS Safety Report 5475810-2 (Version None)
Quarter: 2007Q4

REPORT INFORMATION
  Report Type: 
  Country: None (occurrence: None)
  Receive Date: 20071003
  Receipt Date: 20071001
  Transmission Date: 20080405
  Serious: Yes (Other)
  Sender: FDA-Public Use
  Company Number: A0685421A

PATIENT
  Age: 36 Year
  Sex: Female
  Weight: 56 kg

DRUGS (1)
  1. CEFUROXIME [Suspect]
     Dosage: 500MG TWICE PER DAY
     Route: 048
     Dates: start: 20070831

REACTIONS (1)
  - GASTROINTESTINAL HAEMORRHAGE [None]
